FAERS Safety Report 10056990 (Version 1)
Quarter: 2014Q2

REPORT INFORMATION
  Report Type: Spontaneous
  Country: FR (occurrence: FR)
  Receive Date: 20140403
  Receipt Date: 20140403
  Transmission Date: 20141212
  Serious: Yes (Hospitalization)
  Sender: FDA-Public Use
  Company Number: FR-ACTAVIS-2014-06375

PATIENT
  Age: 83 Year
  Sex: Female

DRUGS (5)
  1. CLOPIDOGREL ARROW [Suspect]
     Indication: PRODUCT USED FOR UNKNOWN INDICATION
     Dosage: 75 MG, DAILY
     Route: 048
     Dates: start: 201309, end: 20131228
  2. CLOPIDOGREL ARROW [Suspect]
     Dosage: 75 MG, DAILY
     Route: 048
     Dates: start: 20140107
  3. CLOPIDOGREL ARROW [Suspect]
     Dosage: 75 MG, DAILY
     Route: 048
     Dates: start: 20140116
  4. TEMERIT [Concomitant]
     Indication: PRODUCT USED FOR UNKNOWN INDICATION
     Dosage: 5 MG, DAILY
     Route: 065
  5. EUPANTOL [Concomitant]
     Indication: PRODUCT USED FOR UNKNOWN INDICATION
     Dosage: 40 MG, DAILY
     Route: 065

REACTIONS (2)
  - Dysfunctional uterine bleeding [Recovered/Resolved]
  - Haematuria [Recovered/Resolved]
